FAERS Safety Report 14108206 (Version 4)
Quarter: 2018Q1

REPORT INFORMATION
  Report Type: Report from Study
  Country: None (occurrence: US)
  Receive Date: 20171019
  Receipt Date: 20180305
  Transmission Date: 20180508
  Serious: Yes (Other)
  Sender: FDA-Public Use
  Company Number: US-ABBVIE-17P-163-2129837-00

PATIENT
  Sex: Female
  Weight: 43.13 kg

DRUGS (33)
  1. CALTRATE PLUS VIT. D [Concomitant]
     Indication: OSTEOPOROSIS
     Route: 048
     Dates: start: 201310
  2. MUPIROCIN OINTMENT [Concomitant]
     Active Substance: MUPIROCIN
     Indication: PSORIASIS
     Route: 061
     Dates: start: 2015
  3. AZITHROMYCIN ANHYDROUS. [Concomitant]
     Active Substance: AZITHROMYCIN ANHYDROUS
     Dosage: MONDAY, WEDNESDAY, FRIDAY
     Route: 048
     Dates: start: 20170616, end: 20170707
  4. AZITHROMYCIN ANHYDROUS. [Concomitant]
     Active Substance: AZITHROMYCIN ANHYDROUS
     Indication: CHRONIC SINUSITIS
     Dosage: TWICE A DAY #1 THEN ONCE A DAY X5 DAYS
     Route: 048
     Dates: start: 20161130, end: 20161205
  5. CIPRO [Concomitant]
     Active Substance: CIPROFLOXACIN HYDROCHLORIDE
     Indication: URINARY TRACT INFECTION
     Route: 048
     Dates: start: 20170220, end: 20170227
  6. CEFEPIME [Concomitant]
     Active Substance: CEFEPIME HYDROCHLORIDE
     Indication: CHRONIC SINUSITIS
     Route: 040
     Dates: start: 20170710, end: 20170725
  7. CEFTIN [Concomitant]
     Active Substance: CEFUROXIME AXETIL
     Indication: BRONCHIECTASIS
     Route: 048
     Dates: start: 20170825, end: 20170903
  8. PREDNISONE. [Concomitant]
     Active Substance: PREDNISONE
     Dosage: WITH TAPER
     Route: 048
     Dates: start: 20170302, end: 20170902
  9. AMITRIPTYLINE [Concomitant]
     Active Substance: AMITRIPTYLINE
     Indication: ANXIETY
  10. DOXYCYCLINE. [Concomitant]
     Active Substance: DOXYCYCLINE
     Indication: ANXIETY
     Route: 048
     Dates: start: 20170421, end: 20170514
  11. GENTAMYCIN [Concomitant]
     Active Substance: GENTAMICIN
     Indication: CHRONIC SINUSITIS
     Route: 045
     Dates: start: 20170608, end: 201709
  12. NEOMYCIN/DEXAMETHASONE GTTS [Concomitant]
     Indication: KERATITIS
     Route: 031
     Dates: start: 20161128, end: 201702
  13. HUMIRA [Suspect]
     Active Substance: ADALIMUMAB
     Route: 058
     Dates: start: 20160823, end: 20170331
  14. PREDNISONE. [Concomitant]
     Active Substance: PREDNISONE
     Dosage: WITH TAPER
     Route: 048
     Dates: start: 20171006
  15. OXYBUTYNIN. [Concomitant]
     Active Substance: OXYBUTYNIN CHLORIDE
     Indication: ANXIETY
  16. HUMIRA [Suspect]
     Active Substance: ADALIMUMAB
     Indication: COLITIS ULCERATIVE
     Route: 058
     Dates: start: 20140818
  17. FOLIC ACID. [Concomitant]
     Active Substance: FOLIC ACID
     Indication: COLITIS ULCERATIVE
     Route: 048
     Dates: start: 200502
  18. PREDNISONE. [Concomitant]
     Active Substance: PREDNISONE
     Indication: TEMPORAL ARTERITIS
     Route: 048
     Dates: start: 201310, end: 20170301
  19. CLOBETASOL SOLUTION [Concomitant]
     Indication: PSORIASIS
     Route: 061
     Dates: start: 201403
  20. AVELOX [Concomitant]
     Active Substance: MOXIFLOXACIN HYDROCHLORIDE
     Indication: ANXIETY
     Route: 048
     Dates: start: 20170413, end: 20170420
  21. COLCHICINE. [Concomitant]
     Active Substance: COLCHICINE
     Indication: GOUT
     Route: 048
     Dates: start: 20170609, end: 20170621
  22. FLUCONAZOLE. [Concomitant]
     Active Substance: FLUCONAZOLE
     Indication: VULVOVAGINAL CANDIDIASIS
     Route: 048
     Dates: start: 20170912, end: 20170912
  23. METHOTREXATE. [Concomitant]
     Active Substance: METHOTREXATE
     Indication: MYALGIA
     Route: 048
     Dates: start: 20171215
  24. PRILOSEC [Concomitant]
     Active Substance: OMEPRAZOLE MAGNESIUM
     Indication: GASTROOESOPHAGEAL REFLUX DISEASE
     Route: 048
     Dates: start: 201110, end: 20171005
  25. TIMOLOL. [Concomitant]
     Active Substance: TIMOLOL
     Indication: GLAUCOMA
     Route: 047
     Dates: start: 201310, end: 20170301
  26. OXYBUTYNIN. [Concomitant]
     Active Substance: OXYBUTYNIN CHLORIDE
     Indication: HYPERTONIC BLADDER
     Route: 048
     Dates: start: 20161121, end: 201703
  27. ENTYVIO [Concomitant]
     Active Substance: VEDOLIZUMAB
     Indication: COLITIS ULCERATIVE
     Route: 065
     Dates: start: 20171102
  28. HUMIRA [Suspect]
     Active Substance: ADALIMUMAB
     Route: 058
     Dates: start: 20170427, end: 20171026
  29. LOSARTAN/HCTZ [Concomitant]
     Active Substance: HYDROCHLOROTHIAZIDE\LOSARTAN
     Indication: HYPERTENSION
     Dosage: 50/12.5MG
     Route: 048
     Dates: start: 2008
  30. AMITRIPTYLINE [Concomitant]
     Active Substance: AMITRIPTYLINE
     Indication: MIGRAINE
     Route: 048
     Dates: start: 2000
  31. LATANOPROST. [Concomitant]
     Active Substance: LATANOPROST
     Indication: GLAUCOMA
     Route: 047
     Dates: start: 201205, end: 20161010
  32. COLCHICINE. [Concomitant]
     Active Substance: COLCHICINE
     Indication: ANXIETY
  33. OXYBUTYNIN. [Concomitant]
     Active Substance: OXYBUTYNIN CHLORIDE
     Indication: HYPERTONIC BLADDER
     Route: 048
     Dates: start: 20170609, end: 201707

REACTIONS (1)
  - Temporal arteritis [Not Recovered/Not Resolved]

NARRATIVE: CASE EVENT DATE: 20171004
